FAERS Safety Report 25133803 (Version 4)
Quarter: 2025Q2

REPORT INFORMATION
  Report Type: Report from Study
  Country: US (occurrence: US)
  Receive Date: 20250328
  Receipt Date: 20250604
  Transmission Date: 20250717
  Serious: No
  Sender: SUNOVION
  Company Number: US-SUMITOMO PHARMA SWITZERLAND GMBH-2025SPA003114

PATIENT

DRUGS (11)
  1. ORGOVYX [Suspect]
     Active Substance: RELUGOLIX
     Indication: Prostate cancer
     Dosage: 360 MG, SINGLE
     Route: 048
     Dates: start: 20250117, end: 20250117
  2. ORGOVYX [Suspect]
     Active Substance: RELUGOLIX
     Dosage: 120 MG, QD
     Route: 048
     Dates: start: 20250118
  3. TAMSULOSIN [Suspect]
     Active Substance: TAMSULOSIN
     Route: 065
  4. DABIGATRAN ETEXILATE [Concomitant]
     Active Substance: DABIGATRAN ETEXILATE
     Route: 065
  5. DOCETAXEL [Concomitant]
     Active Substance: DOCETAXEL
     Route: 042
  6. METOPROLOL SUCCINATE [Concomitant]
     Active Substance: METOPROLOL SUCCINATE
     Route: 065
  7. NUBEQA [Concomitant]
     Active Substance: DAROLUTAMIDE
     Route: 065
  8. SOLIFENACIN SUCCINATE [Concomitant]
     Active Substance: SOLIFENACIN SUCCINATE
     Route: 065
  9. VALSARTAN [Concomitant]
     Active Substance: VALSARTAN
     Route: 065
  10. VITAMIN D3 [Concomitant]
     Active Substance: CHOLECALCIFEROL
     Route: 065
  11. ACETAMINOPHEN [Concomitant]
     Active Substance: ACETAMINOPHEN
     Route: 065

REACTIONS (12)
  - Presyncope [Recovered/Resolved]
  - Onychalgia [Not Recovered/Not Resolved]
  - Dehydration [Recovered/Resolved]
  - Hypoaesthesia [Not Recovered/Not Resolved]
  - Nail discolouration [Recovering/Resolving]
  - Nail bed tenderness [Unknown]
  - Peripheral swelling [Unknown]
  - Onycholysis [Unknown]
  - Dizziness [Recovered/Resolved]
  - Pain in extremity [Not Recovered/Not Resolved]
  - Fatigue [Unknown]
  - Arthralgia [Unknown]

NARRATIVE: CASE EVENT DATE: 20250304
